FAERS Safety Report 8524616-6 (Version None)
Quarter: 2012Q3

REPORT INFORMATION
  Report Type: 
  Country: None (occurrence: None)
  Receive Date: 20120720
  Receipt Date: 20120627
  Transmission Date: 20120928
  Serious: Yes (Other)
  Sender: FDA-Public Use
  Company Number: CA-ROCHE-1073514

PATIENT
  Sex: Male

DRUGS (8)
  1. OXYCET [Concomitant]
     Indication: PAIN
     Dosage: PM
  2. CALCIUM [Concomitant]
     Route: 048
  3. VEMURAFENIB [Suspect]
     Indication: METASTATIC MALIGNANT MELANOMA
     Route: 048
     Dates: start: 20120516
  4. ASCORBIC ACID [Concomitant]
  5. ZOPICLONE [Concomitant]
     Indication: INSOMNIA
     Dosage: 1 TAB HS
  6. EFFEXOR [Concomitant]
     Indication: DEPRESSION
  7. VITAMIN D [Concomitant]
     Route: 048
  8. LOVAZA [Concomitant]
     Route: 048

REACTIONS (4)
  - FATIGUE [None]
  - PRURITUS [None]
  - MASS [None]
  - ARTHRALGIA [None]
